FAERS Safety Report 7230885-5 (Version None)
Quarter: 2011Q1

REPORT INFORMATION
  Report Type: 
  Country: None (occurrence: None)
  Receive Date: 20110118
  Receipt Date: 20110110
  Transmission Date: 20110831
  Serious: Yes (Other)
  Sender: FDA-Public Use
  Company Number: CA-JNJFOC-20110103163

PATIENT
  Sex: Male
  Weight: 50.58 kg

DRUGS (4)
  1. REMICADE [Suspect]
     Indication: CROHN'S DISEASE
     Route: 042
  2. OXYCONTIN [Concomitant]
     Indication: DISCOMFORT
     Dosage: 6-8 TABLETS DAILY
  3. TYLENOL [Concomitant]
  4. FLAGYL [Concomitant]

REACTIONS (3)
  - ARTHRALGIA [None]
  - HEADACHE [None]
  - JOINT SWELLING [None]
